FAERS Safety Report 20746889 (Version 1)
Quarter: 2022Q2

REPORT INFORMATION
  Report Type: Spontaneous
  Country: GB (occurrence: GB)
  Receive Date: 20220425
  Receipt Date: 20220425
  Transmission Date: 20220721
  Serious: Yes (Other)
  Sender: FDA-Public Use
  Company Number: None

PATIENT
  Age: 61 Year
  Sex: Male

DRUGS (13)
  1. PROMETHAZINE [Suspect]
     Active Substance: PROMETHAZINE HYDROCHLORIDE
     Indication: Insomnia
     Dosage: 25 MILLIGRAM DAILY; THERAPY DURATION : 44  DAYS
     Dates: start: 20220202, end: 20220318
  2. NEURONTIN [Concomitant]
     Active Substance: GABAPENTIN
     Dosage: 3600 MILLIGRAM DAILY; UNIT DOSE : 1200 MG, FREQUENCY :3 IN1 DAY
  3. FEXOFENADINE [Concomitant]
     Active Substance: FEXOFENADINE HYDROCHLORIDE
     Dosage: 180 MILLIGRAM DAILY;
  4. MORPHINE SULFATE [Concomitant]
     Active Substance: MORPHINE SULFATE
  5. LANSOPRAZOLE [Concomitant]
     Active Substance: LANSOPRAZOLE
     Dosage: UNIT DOSE : 15 MG
  6. GLICLAZIDE [Concomitant]
     Active Substance: GLICLAZIDE
     Dosage: 160 MILLIGRAM DAILY; UNIT DOSE: 80 MG, FREQUENCY : 2 IN 1 DAY
  7. DIPHENHYDRAMINE [Concomitant]
     Active Substance: DIPHENHYDRAMINE
     Dosage: UNIT DOSE : 25 MG
  8. CETIRIZINE [Concomitant]
     Active Substance: CETIRIZINE HYDROCHLORIDE
     Dosage: 30 MILLIGRAM DAILY; UNIT DOSE: 10 MG, FREQUENCY : 3 IN 1 DAY
  9. ATORVASTATIN [Concomitant]
     Active Substance: ATORVASTATIN
     Dosage: 40 MILLIGRAM DAILY; UNIT DOSE: 40 MG
  10. MORPHINE [Concomitant]
     Active Substance: MORPHINE
     Dosage: 20 MILLIGRAM DAILY; UNIT DOSE: 10 MG, FREQUENCY ; 1 IN 12 HOURS
  11. AMITRIPTYLINE [Concomitant]
     Active Substance: AMITRIPTYLINE
     Dosage: ONE OR TWO AT NIGHT, UNIT DOSE :  10 MG
  12. AMLODIPINE [Concomitant]
     Active Substance: AMLODIPINE BESYLATE
     Dosage: 5 MILLIGRAM DAILY; UNIT DOSE: 5 MG
  13. ALOGLIPTIN [Concomitant]
     Active Substance: ALOGLIPTIN
     Dosage: UNIT DOSE : 25 MG

REACTIONS (1)
  - Oral discomfort [Unknown]
